FAERS Safety Report 4953985-9 (Version None)
Quarter: 2006Q1

REPORT INFORMATION
  Report Type: 
  Country: None (occurrence: None)
  Receive Date: 20060322
  Receipt Date: 20060313
  Transmission Date: 20060701
  Serious: Yes (Other)
  Sender: FDA-Public Use
  Company Number: 2006037278

PATIENT
  Age: 13 Year
  Sex: Male

DRUGS (4)
  1. ATARAX [Suspect]
     Indication: ILL-DEFINED DISORDER
     Dosage: 21 DF (ONCE), ORAL
     Route: 048
     Dates: start: 20060312, end: 20060312
  2. DOXEPIN HCL [Suspect]
     Indication: ILL-DEFINED DISORDER
     Dosage: 5000 MG (ONCE), ORAL
     Route: 048
     Dates: start: 20060312, end: 20060312
  3. CETIRIZINE HCL [Suspect]
     Indication: ILL-DEFINED DISORDER
     Dosage: ORAL
     Route: 048
     Dates: start: 20060312, end: 20060312
  4. NOSCAPINE               (NOSCAPINE) [Suspect]
     Indication: ILL-DEFINED DISORDER
     Dosage: 250 MG (ONCE), ORAL
     Route: 048
     Dates: start: 20060312, end: 20060312

REACTIONS (4)
  - MULTIPLE DRUG OVERDOSE INTENTIONAL [None]
  - SOMNOLENCE [None]
  - SUICIDE ATTEMPT [None]
  - TACHYCARDIA [None]
